FAERS Safety Report 14480588 (Version 1)
Quarter: 2018Q1

REPORT INFORMATION
  Report Type: Spontaneous
  Country: ES (occurrence: ES)
  Receive Date: 20180202
  Receipt Date: 20180202
  Transmission Date: 20180509
  Serious: Yes (Other)
  Sender: FDA-Public Use
  Company Number: ES-MYLANLABS-2018M1006081

PATIENT
  Age: 77 Year
  Sex: Male

DRUGS (4)
  1. CILOSTAZOL. [Concomitant]
     Active Substance: CILOSTAZOL
     Indication: PERIPHERAL ISCHAEMIA
     Dosage: UNK
  2. VALSARTAN. [Suspect]
     Active Substance: VALSARTAN
     Indication: HYPERTENSION
     Dosage: UNK
     Route: 065
  3. SITAGLIPTIN [Concomitant]
     Active Substance: SITAGLIPTIN
     Indication: TYPE 2 DIABETES MELLITUS
     Dosage: UNK
     Route: 065
  4. CLOPIDOGREL [Concomitant]
     Active Substance: CLOPIDOGREL BISULFATE
     Indication: ISCHAEMIA
     Dosage: UNK

REACTIONS (4)
  - Sprue-like enteropathy [Recovering/Resolving]
  - Weight decreased [Recovering/Resolving]
  - Abdominal pain [Recovering/Resolving]
  - Diarrhoea [Recovering/Resolving]
